FAERS Safety Report 4371948-1 (Version None)
Quarter: 2004Q2

REPORT INFORMATION
  Report Type: 
  Country: None (occurrence: None)
  Receive Date: 20040601
  Receipt Date: 20040519
  Transmission Date: 20050107
  Serious: Yes (Other)
  Sender: FDA-Public Use
  Company Number: HQWYE085924MAY04

PATIENT
  Sex: Female

DRUGS (4)
  1. CYCRIN [Suspect]
     Indication: HORMONE REPLACEMENT THERAPY
     Dosage: UNSPECIFIED DOSAGE
     Dates: start: 19970101
  2. ESTRADIOL [Suspect]
     Indication: HORMONE REPLACEMENT THERAPY
     Dosage: UNSPECIFIED IN COMBINATION WITH UNSPECIFIED DOSE OF MEDROXYPROGESTERONE
     Dates: start: 19970101, end: 19990101
  3. ESTRADIOL [Suspect]
     Indication: HORMONE REPLACEMENT THERAPY
     Dosage: UNSPECIFIED IN COMBINATION WITH UNSPECIFIED DOSE OF MEDROXYPROGESTERONE
     Dates: start: 19990101, end: 20020101
  4. MEDROXYPROGESTERONE [Suspect]
     Indication: HORMONE REPLACEMENT THERAPY
     Dosage: UNSPECIFIED DOSAGE, ORAL
     Route: 048
     Dates: start: 19990101, end: 20020101

REACTIONS (1)
  - BREAST CANCER FEMALE [None]
